FAERS Safety Report 10674581 (Version 2)
Quarter: 2014Q4

REPORT INFORMATION
  Report Type: Spontaneous
  Country: JP (occurrence: JP)
  Receive Date: 20141224
  Receipt Date: 20141229
  Transmission Date: 20150529
  Serious: Yes (Hospitalization)
  Sender: FDA-Public Use
  Company Number: JP-B.I. PHARMACEUTICALS,INC./RIDGEFIELD-2014-BI-62031YA

PATIENT
  Age: 68 Year
  Sex: Male

DRUGS (2)
  1. HARNAL [Suspect]
     Active Substance: TAMSULOSIN HYDROCHLORIDE
     Indication: PRODUCT USED FOR UNKNOWN INDICATION
     Dosage: FORMULATION : ORODISPERSIBLE TABLET
     Route: 065
     Dates: start: 20140410, end: 20140507
  2. HARNAL [Suspect]
     Active Substance: TAMSULOSIN HYDROCHLORIDE
     Dosage: FORMULATION : ORODISPERSIBLE TABLET
     Route: 065
     Dates: start: 20140509

REACTIONS (1)
  - Calculus bladder [Recovered/Resolved]

NARRATIVE: CASE EVENT DATE: 20141213
